FAERS Safety Report 7572112-5 (Version None)
Quarter: 2011Q2

REPORT INFORMATION
  Report Type: 
  Country: None (occurrence: None)
  Receive Date: 20110624
  Receipt Date: 20110615
  Transmission Date: 20111010
  Serious: Yes (Hospitalization, Disabling)
  Sender: FDA-Public Use
  Company Number: US-B.I. PHARMACEUTICALS,INC./RIDGEFIELD-2011-BP-16195PF

PATIENT
  Age: 43 Year
  Sex: Female

DRUGS (6)
  1. CLARITIN [Concomitant]
     Indication: SEASONAL ALLERGY
  2. ALBUTEROL SULFATE AUTOHALER [Concomitant]
     Indication: CHRONIC OBSTRUCTIVE PULMONARY DISEASE
  3. NAPROXEN [Concomitant]
     Indication: ARTHRITIS
  4. SPIRIVA [Suspect]
     Indication: CHRONIC OBSTRUCTIVE PULMONARY DISEASE
     Dosage: 18 MCG
     Route: 055
     Dates: start: 20040101
  5. OMBRAZOL [Concomitant]
     Indication: SEASONAL ALLERGY
  6. GABAPENTIN [Concomitant]
     Indication: NEURALGIA

REACTIONS (4)
  - THERMAL BURN [None]
  - NERVE INJURY [None]
  - FOOT FRACTURE [None]
  - ROAD TRAFFIC ACCIDENT [None]
